FAERS Safety Report 18914449 (Version 1)
Quarter: 2021Q1

REPORT INFORMATION
  Report Type: Spontaneous
  Country: US (occurrence: US)
  Receive Date: 20210218
  Receipt Date: 20210218
  Transmission Date: 20210420
  Serious: Yes (Hospitalization)
  Sender: FDA-Public Use
  Company Number: US-TEVA-2021-US-1879666

PATIENT
  Age: 14 Year
  Sex: Male

DRUGS (7)
  1. MORPHINE SULFATE. [Suspect]
     Active Substance: MORPHINE SULFATE
     Indication: PORPHYRIA ACUTE
     Route: 065
  2. HUMAN ALBUMIN [Concomitant]
     Active Substance: ALBUMIN HUMAN
     Indication: VEHICLE SOLUTION USE
     Dosage: FOR RECONSTITUTION OF HEMIN
     Route: 041
  3. GLUCOSE [Suspect]
     Active Substance: DEXTROSE
     Indication: PORPHYRIA ACUTE
     Dosage: 3 LITERS DAILY;
     Route: 042
  4. PANHEMATIN [Suspect]
     Active Substance: HEMIN
     Indication: PORPHYRIA ACUTE
     Route: 041
  5. PROMETHAZINE [Suspect]
     Active Substance: PROMETHAZINE HYDROCHLORIDE
     Indication: PORPHYRIA ACUTE
     Route: 065
  6. PANHEMATIN [Suspect]
     Active Substance: HEMIN
     Indication: PORPHYRIA ACUTE
     Dosage: 3 MG/KG DAILY;
     Route: 041
  7. PANHEMATIN [Suspect]
     Active Substance: HEMIN
     Indication: PORPHYRIA ACUTE
     Dosage: AS PROPHYLAXIS
     Route: 041

REACTIONS (2)
  - Iron overload [Recovered/Resolved]
  - Drug ineffective [Unknown]
